FAERS Safety Report 24398200 (Version 1)
Quarter: 2024Q4

REPORT INFORMATION
  Report Type: Spontaneous
  Country: US (occurrence: None)
  Receive Date: 20241003
  Receipt Date: 20241003
  Transmission Date: 20250115
  Serious: Yes (Disabling)
  Sender: Public
  Company Number: None

PATIENT
  Age: 38 Year
  Sex: Male
  Weight: 87.75 kg

DRUGS (5)
  1. SKYRIZI [Suspect]
     Active Substance: RISANKIZUMAB-RZAA
     Indication: Psoriasis
     Dosage: OTHER QUANTITY : 1 INJECTION(S);?OTHER ROUTE : INJECTED INTO ABDOMEN PER PACKAGE INSTR.;?
     Route: 050
     Dates: start: 20221122, end: 20230112
  2. LOSARTAN [Concomitant]
     Active Substance: LOSARTAN
  3. SPIRONOLACTONE [Concomitant]
     Active Substance: SPIRONOLACTONE
  4. JARDIANCE [Concomitant]
     Active Substance: EMPAGLIFLOZIN
  5. Daily multivitamins [Concomitant]

REACTIONS (6)
  - Haematuria [None]
  - Proteinuria [None]
  - Hypertension [None]
  - Fatigue [None]
  - Malaise [None]
  - Chronic kidney disease [None]

NARRATIVE: CASE EVENT DATE: 20221122
